FAERS Safety Report 25835813 (Version 1)
Quarter: 2025Q3

REPORT INFORMATION
  Report Type: Report from Study
  Country: CA (occurrence: CA)
  Receive Date: 20250923
  Receipt Date: 20250923
  Transmission Date: 20251021
  Serious: Yes (Hospitalization, Other)
  Sender: ABBVIE
  Company Number: CA-ABBVIE-6469935

PATIENT
  Age: 49 Year
  Sex: Female

DRUGS (2)
  1. RINVOQ [Suspect]
     Active Substance: UPADACITINIB
     Indication: Crohn^s disease
     Dosage: FORM STRENGTH: 15 MG
     Route: 048
     Dates: end: 202412
  2. RINVOQ [Suspect]
     Active Substance: UPADACITINIB
     Indication: Crohn^s disease
     Route: 048
     Dates: start: 202502

REACTIONS (8)
  - Small intestinal resection [Unknown]
  - Abdominal pain [Unknown]
  - Drug ineffective [Unknown]
  - Colitis [Unknown]
  - Diarrhoea [Unknown]
  - Arthralgia [Unknown]
  - Aphthous ulcer [Unknown]
  - Anaemia [Unknown]

NARRATIVE: CASE EVENT DATE: 20250129
